FAERS Safety Report 19579022 (Version 1)
Quarter: 2021Q3

REPORT INFORMATION
  Report Type: Spontaneous
  Country: DE (occurrence: DE)
  Receive Date: 20210720
  Receipt Date: 20210720
  Transmission Date: 20211014
  Serious: Yes (Life-Threatening, Hospitalization, Other)
  Sender: FDA-Public Use
  Company Number: DE-LUPIN PHARMACEUTICALS INC.-2021-12214

PATIENT
  Age: 75 Year
  Sex: Male
  Weight: 75 kg

DRUGS (3)
  1. PEMBROLIZUMAB. [Suspect]
     Active Substance: PEMBROLIZUMAB
     Indication: MESOTHELIOMA MALIGNANT
     Dosage: 200 MILLIGRAM EVERY 3 WEEKS
     Route: 065
  2. METHYLPREDNISOLONE. [Suspect]
     Active Substance: METHYLPREDNISOLONE
     Dosage: UNK (DOSE DECREASED)
     Route: 042
  3. METHYLPREDNISOLONE. [Suspect]
     Active Substance: METHYLPREDNISOLONE
     Indication: MYOCARDITIS
     Dosage: 100 MILLIGRAM, QD,  APPROX1.5 MG/KG
     Route: 042

REACTIONS (7)
  - Coma [Recovered/Resolved]
  - Haemodynamic instability [Recovered/Resolved]
  - Atrial flutter [Recovered/Resolved]
  - Atrial fibrillation [Recovered/Resolved]
  - Off label use [None]
  - Drug ineffective for unapproved indication [Unknown]
  - Ventricular tachyarrhythmia [Recovered/Resolved]
